FAERS Safety Report 17865977 (Version 4)
Quarter: 2020Q3

REPORT INFORMATION
  Report Type: Spontaneous
  Country: US (occurrence: US)
  Receive Date: 20200605
  Receipt Date: 20200827
  Transmission Date: 20201103
  Serious: No
  Sender: FDA-Public Use
  Company Number: US-PFIZER INC-2020124354

PATIENT
  Age: 79 Year

DRUGS (2)
  1. EFFEXOR XR [Suspect]
     Active Substance: VENLAFAXINE HYDROCHLORIDE
     Dosage: 300 MG, DAILY, (QUANTITY FOR 90 DAYS: 180)
  2. TOVIAZ [Suspect]
     Active Substance: FESOTERODINE FUMARATE
     Dosage: 8 MG, DAILY, (QUANTITY FOR 90 DAYS: 180)

REACTIONS (3)
  - Emotional disorder [Unknown]
  - Visual impairment [Unknown]
  - Eye disorder [Unknown]
